FAERS Safety Report 16982576 (Version 2)
Quarter: 2019Q4

REPORT INFORMATION
  Report Type: Spontaneous
  Country: TH (occurrence: TH)
  Receive Date: 20191101
  Receipt Date: 20191224
  Transmission Date: 20200122
  Serious: Yes (Hospitalization)
  Sender: FDA-Public Use
  Company Number: TH-B.I. PHARMACEUTICALS,INC./RIDGEFIELD-2019-BI-109926

PATIENT
  Age: 68 Year
  Sex: Male

DRUGS (1)
  1. OFEV [Suspect]
     Active Substance: NINTEDANIB
     Indication: IDIOPATHIC PULMONARY FIBROSIS
     Route: 048
     Dates: start: 201810, end: 20191014

REACTIONS (2)
  - Diarrhoea [Recovered/Resolved]
  - Electrolyte imbalance [Recovered/Resolved]
